FAERS Safety Report 24305991 (Version 4)
Quarter: 2024Q4

REPORT INFORMATION
  Report Type: Spontaneous
  Country: US (occurrence: US)
  Receive Date: 20240911
  Receipt Date: 20241205
  Transmission Date: 20250115
  Serious: Yes (Hospitalization, Other)
  Sender: UCB
  Company Number: US-UCBSA-2024044118

PATIENT
  Age: 51 Year
  Sex: Female

DRUGS (4)
  1. RYSTIGGO [Suspect]
     Active Substance: ROZANOLIXIZUMAB-NOLI
     Indication: Myasthenia gravis
     Dosage: 4 MILLILITER, WEEKLY (QW): CYCLE 1
     Route: 058
     Dates: start: 202403, end: 2024
  2. RYSTIGGO [Suspect]
     Active Substance: ROZANOLIXIZUMAB-NOLI
     Dosage: 4 MILLILITER, WEEKLY (QW): CYCLE 2
     Route: 058
     Dates: start: 2024
  3. PREDNISONE [Suspect]
     Active Substance: PREDNISONE
     Indication: Myasthenia gravis
  4. MESTINON [Concomitant]
     Active Substance: PYRIDOSTIGMINE BROMIDE
     Indication: Myasthenia gravis

REACTIONS (6)
  - Myasthenia gravis [Recovered/Resolved]
  - Blindness [Recovered/Resolved]
  - Feeling abnormal [Recovered/Resolved]
  - Dysarthria [Recovered/Resolved]
  - Eyelid ptosis [Recovered/Resolved]
  - Swelling [Unknown]

NARRATIVE: CASE EVENT DATE: 20240401
